FAERS Safety Report 10907568 (Version 1)
Quarter: 2015Q1

REPORT INFORMATION
  Report Type: Spontaneous
  Country: US (occurrence: US)
  Receive Date: 20150312
  Receipt Date: 20150312
  Transmission Date: 20150721
  Serious: No
  Sender: FDA-Public Use
  Company Number: US-PFIZER INC-2015086202

PATIENT
  Age: 26 Year
  Sex: Male
  Weight: 61 kg

DRUGS (2)
  1. GABAPENTIN. [Suspect]
     Active Substance: GABAPENTIN
     Indication: TARSAL TUNNEL SYNDROME
     Dosage: 300 MG, 3X/DAY
     Route: 048
     Dates: start: 2014, end: 201411
  2. NUCYNTA [Concomitant]
     Active Substance: TAPENTADOL HYDROCHLORIDE
     Indication: PAIN
     Dosage: 50 MG, UP TO 4 TABLETS PER DAY AS NEEDED
     Route: 048

REACTIONS (5)
  - Dizziness [Recovering/Resolving]
  - Balance disorder [Recovering/Resolving]
  - Drug ineffective [Recovered/Resolved]
  - Gait disturbance [Unknown]
  - Pain [Unknown]

NARRATIVE: CASE EVENT DATE: 2014
